FAERS Safety Report 5644096-8 (Version None)
Quarter: 2008Q1

REPORT INFORMATION
  Report Type: 
  Country: None (occurrence: None)
  Receive Date: 20080226
  Receipt Date: 20080212
  Transmission Date: 20080703
  Serious: Yes (Hospitalization)
  Sender: FDA-Public Use
  Company Number: B0508356A

PATIENT
  Age: 67 Year
  Sex: Female

DRUGS (8)
  1. AUGMENTIN [Suspect]
     Indication: ACUTE PULMONARY OEDEMA
     Dosage: 1 GRAM (S) THREE TIMES PER DAY / INTRA
     Route: 042
     Dates: start: 20080102, end: 20080102
  2. CLAFORAN INJECTION (CLAFORAN) [Suspect]
     Indication: ACUTE PULMONARY OEDEMA
     Dosage: 3 GRAM(S) /PER DAY/ INTRAVNEOUS
     Route: 042
     Dates: start: 20080103
  3. TERBUTALINE SULFATE [Concomitant]
  4. IPRATROPIUM BROMIDE [Concomitant]
  5. ENOXAPARIN [Concomitant]
  6. ME-PREDNISOLONE NA SUCC [Concomitant]
  7. LEVOFLOXACIN [Concomitant]
  8. AMITRIPTYLINE HCL [Concomitant]

REACTIONS (5)
  - BODY TEMPERATURE INCREASED [None]
  - DERMATITIS EXFOLIATIVE [None]
  - GENERALISED ERYTHEMA [None]
  - OEDEMA PERIPHERAL [None]
  - PRURITUS [None]
